FAERS Safety Report 7850388-4 (Version None)
Quarter: 2011Q4

REPORT INFORMATION
  Report Type: 
  Country: None (occurrence: None)
  Receive Date: 20111024
  Receipt Date: 20111013
  Transmission Date: 20120403
  Serious: Yes (Life-Threatening, Hospitalization)
  Sender: FDA-Public Use
  Company Number: 2011CP000164

PATIENT
  Age: 6 Year
  Sex: Female

DRUGS (3)
  1. ACETAMINOPHEN [Suspect]
     Indication: ANALGESIC THERAPY
     Dosage: 400 MG;1/1 DAY;IV
     Route: 042
     Dates: start: 20110926, end: 20110926
  2. HEPARIN SODIUM [Suspect]
     Indication: THROMBOSIS PROPHYLAXIS
     Dosage: .2 ML; 1/1 TOTAL
     Dates: start: 20110916
  3. IBUPROFEN [Suspect]
     Indication: PROCEDURAL PAIN
     Dosage: 7.5 ML; 1/1 TOTAL;PO
     Route: 048
     Dates: start: 20110926

REACTIONS (5)
  - COAGULOPATHY [None]
  - POST PROCEDURAL HAEMORRHAGE [None]
  - MEDICATION ERROR [None]
  - INTERNATIONAL NORMALISED RATIO INCREASED [None]
  - ACTIVATED PARTIAL THROMBOPLASTIN TIME PROLONGED [None]
